FAERS Safety Report 4293055-9 (Version None)
Quarter: 2004Q1

REPORT INFORMATION
  Report Type: 
  Country: None (occurrence: None)
  Receive Date: 20040210
  Receipt Date: 20040130
  Transmission Date: 20041129
  Serious: Yes (Hospitalization)
  Sender: FDA-Public Use
  Company Number: 200310539BYL

PATIENT
  Age: 66 Year
  Sex: Male
  Weight: 55 kg

DRUGS (3)
  1. BAYASPIRIN (ACETYLSALICYIC ACID) [Suspect]
     Indication: CORONARY ARTERY ATHEROSCLEROSIS
     Dosage: 100 MG, QD, ORAL
     Route: 048
     Dates: start: 20031008, end: 20031128
  2. AMARYL [Suspect]
     Indication: DIABETES MELLITUS
     Dosage: 1 MG, QD, ORAL
     Route: 048
     Dates: start: 20031008, end: 20031119
  3. BASEN (VOGLIBOSE) [Suspect]
     Indication: DIABETES MELLITUS
     Dosage: 0.3 MG, TID, ORAL
     Route: 048
     Dates: start: 20031008, end: 20031119

REACTIONS (1)
  - HEPATITIS ACUTE [None]
